FAERS Safety Report 5087850-6 (Version None)
Quarter: 2006Q3

REPORT INFORMATION
  Report Type: 
  Country: None (occurrence: None)
  Receive Date: 20060821
  Receipt Date: 20060821
  Transmission Date: 20061208
  Serious: Yes (Death, Hospitalization)
  Sender: FDA-Public Use
  Company Number: None

PATIENT
  Sex: Female
  Weight: 100.9 kg

DRUGS (5)
  1. CYCLOPHOSPHAMIDE [Suspect]
     Dosage: 1530 MG
     Dates: end: 20060727
  2. DOXORUBICIN HYDROCHLORIDE [Suspect]
     Dosage: 100 MG
     Dates: end: 20060727
  3. PREDNISONE TAB [Suspect]
     Dosage: 500 MG
     Dates: end: 20060731
  4. RITUXIMAB (MOAB C2B8 ANTI CD20, CHIMERIC) [Suspect]
     Dosage: 1530 MG
     Dates: end: 20060725
  5. VINCRISTINE SULFATE [Suspect]
     Dosage: 2 MG
     Dates: end: 20060727

REACTIONS (8)
  - ABDOMINAL PAIN [None]
  - DYSPNOEA [None]
  - NEUTROPHIL COUNT DECREASED [None]
  - PAIN IN EXTREMITY [None]
  - PLATELET COUNT DECREASED [None]
  - RESPIRATORY RATE INCREASED [None]
  - VOMITING [None]
  - WHITE BLOOD CELL COUNT DECREASED [None]
